FAERS Safety Report 17247111 (Version 4)
Quarter: 2020Q1

REPORT INFORMATION
  Report Type: Spontaneous
  Country: US (occurrence: US)
  Receive Date: 20200108
  Receipt Date: 20200305
  Transmission Date: 20200409
  Serious: No
  Sender: FDA-Public Use
  Company Number: US-PFIZER INC-2020006848

PATIENT
  Age: 76 Year
  Sex: Female
  Weight: 83 kg

DRUGS (7)
  1. HTZ [Concomitant]
     Active Substance: HYDROCHLOROTHIAZIDE
     Dosage: 40/25 MG AT 1 TABLET A DAY
  2. ATORVASTATIN CALCIUM. [Concomitant]
     Active Substance: ATORVASTATIN CALCIUM
     Indication: BLOOD CHOLESTEROL ABNORMAL
     Dosage: 10 MG, 1X/DAY
  3. ESOMEPRAZOLE MAGNESIUM. [Concomitant]
     Active Substance: ESOMEPRAZOLE MAGNESIUM
     Indication: GASTROOESOPHAGEAL REFLUX DISEASE
     Dosage: 40 MG, 1X/DAY
  4. METFORMIN HCL [Concomitant]
     Active Substance: METFORMIN HYDROCHLORIDE
     Indication: DIABETES MELLITUS
     Dosage: 500 MG, 2X/DAY
  5. OLMESARTAN MEDOXOMIL. [Concomitant]
     Active Substance: OLMESARTAN MEDOXOMIL
     Indication: BLOOD PRESSURE ABNORMAL
     Dosage: UNK
  6. MONTELUKAST SODIUM. [Concomitant]
     Active Substance: MONTELUKAST SODIUM
     Dosage: 10 MG, 1X/DAY
  7. PREMARIN [Suspect]
     Active Substance: ESTROGENS, CONJUGATED
     Indication: HYPERTONIC BLADDER
     Dosage: PEA SIZE ONCE THREE TIMES A WEEK (MONDAY, WEDNESDAY AND FRIDAYS)
     Route: 067
     Dates: start: 201910

REACTIONS (6)
  - Asthenia [Unknown]
  - Nasopharyngitis [Unknown]
  - Therapeutic product effect incomplete [Recovering/Resolving]
  - Malaise [Unknown]
  - Product use in unapproved indication [Recovering/Resolving]
  - Off label use [Recovering/Resolving]

NARRATIVE: CASE EVENT DATE: 201910
